FAERS Safety Report 4727379-5 (Version None)
Quarter: 2005Q3

REPORT INFORMATION
  Report Type: 
  Country: None (occurrence: None)
  Receive Date: 20050727
  Receipt Date: 20050727
  Transmission Date: 20060218
  Serious: Yes (Life-Threatening)
  Sender: FDA-Public Use
  Company Number: None

PATIENT
  Age: 56 Year
  Sex: Female
  Weight: 92 kg

DRUGS (11)
  1. INFED [Suspect]
     Indication: ANAEMIA
     Dosage: 25 MG IV OTO
     Route: 042
     Dates: start: 20050322
  2. INFED [Suspect]
     Indication: RENAL FAILURE CHRONIC
     Dosage: 25 MG IV OTO
     Route: 042
     Dates: start: 20050322
  3. BENADRYL [Concomitant]
  4. PREVACID [Concomitant]
  5. LEVAQUIN [Concomitant]
  6. CA GLUCONATE [Concomitant]
  7. NA BICARB [Concomitant]
  8. CLONIDINE [Concomitant]
  9. TARKA [Concomitant]
  10. LASIX [Concomitant]
  11. KLOR-CON [Concomitant]

REACTIONS (4)
  - CARDIO-RESPIRATORY ARREST [None]
  - FEELING HOT [None]
  - INFUSION RELATED REACTION [None]
  - LOSS OF CONSCIOUSNESS [None]
